FAERS Safety Report 5882948-4 (Version None)
Quarter: 2008Q3

REPORT INFORMATION
  Report Type: 
  Country: None (occurrence: None)
  Receive Date: 20080913
  Receipt Date: 20080822
  Transmission Date: 20090109
  Serious: No
  Sender: FDA-Public Use
  Company Number: US-ABBOTT-08P-163-0472223-00

PATIENT
  Sex: Female
  Weight: 100 kg

DRUGS (3)
  1. HUMIRA [Suspect]
     Indication: PSORIASIS
     Route: 058
     Dates: start: 20080521, end: 20080611
  2. HUMIRA [Suspect]
     Route: 058
     Dates: start: 20080701
  3. MANY BUT DECLINES TO PROVIDE [Concomitant]

REACTIONS (2)
  - DRUG INEFFECTIVE [None]
  - PSORIASIS [None]
